FAERS Safety Report 4930708-0 (Version None)
Quarter: 2006Q1

REPORT INFORMATION
  Report Type: 
  Country: None (occurrence: None)
  Receive Date: 20060227
  Receipt Date: 20060213
  Transmission Date: 20060701
  Serious: Yes (Hospitalization)
  Sender: FDA-Public Use
  Company Number: MEDI-0004170

PATIENT
  Age: 53 Year
  Sex: Male
  Weight: 97.6 kg

DRUGS (8)
  1. ETHYOL [Suspect]
     Indication: CHEMOTHERAPY
     Dosage: 500 MG, 5 IN 1 WK, SUBCUTANEOUS
     Route: 058
     Dates: start: 20060123, end: 20060210
  2. ETHYOL [Suspect]
     Indication: RADIOTHERAPY
     Dosage: 500 MG, 5 IN 1 WK, SUBCUTANEOUS
     Route: 058
     Dates: start: 20060123, end: 20060210
  3. TAXOL [Concomitant]
  4. CISPLATIN [Concomitant]
  5. RADIATION THERAPY [Concomitant]
  6. PLAVIX [Concomitant]
  7. ZOCOR [Concomitant]
  8. PROPION (AMFEPRAMONE HYDROCHLORIDE) [Concomitant]

REACTIONS (2)
  - CORONARY ARTERY DISEASE [None]
  - DEHYDRATION [None]
